FAERS Safety Report 8564547 (Version 6)
Quarter: 2014Q1

REPORT INFORMATION
  Report Type: Report from Study
  Country: US (occurrence: US)
  Receive Date: 20120516
  Receipt Date: 20140106
  Transmission Date: 20141002
  Serious: Yes (Hospitalization)
  Sender: FDA-Public Use
  Company Number: US-TEVA-337777USA

PATIENT
  Age: 53 Year
  Sex: Female
  Weight: 72 kg

DRUGS (10)
  1. FLUOROURACIL [Suspect]
     Indication: NEOPLASM
     Dosage: OVER DAYS 1-3 AND 15-17 OF EACH 28 DAY CYCLE (2400 MG/M2)
     Route: 042
     Dates: start: 20120320, end: 20120321
  2. FOLINIC ACID [Suspect]
     Indication: NEOPLASM
     Dosage: ON DAY 1 AND DAY 15 OF EACH 28 DAY CYCLS (400 MG/M2)
     Route: 042
     Dates: start: 20120320, end: 20120320
  3. INVESTIGATIONAL DRUG (ABT-888 VELIPARIB) [Suspect]
     Indication: NEOPLASM
  4. IRINOTECAN [Suspect]
     Indication: NEOPLASM
     Dosage: ON DAY 1 AND DAY 15 OF EACH 28 DAY CYCLE (150 MG/M2)
     Route: 042
     Dates: start: 20120320, end: 20120320
  5. FENTANYL [Concomitant]
     Indication: ABDOMINAL PAIN
     Dosage: 48 MICROGRAM DAILY;
  6. DICYCLOVERINE HYDROCHLORIDE [Concomitant]
     Indication: MUSCLE SPASMS
     Dosage: 80 MILLIGRAM DAILY;
  7. ESTRADIOL [Concomitant]
     Indication: MENOPAUSE
     Dosage: .0071 MILLIGRAM DAILY;
  8. PANTOPRAZOLE SODIUM [Concomitant]
     Indication: PRODUCT USED FOR UNKNOWN INDICATION
     Dosage: 40 MILLIGRAM DAILY;
  9. HYZAAR [Concomitant]
     Indication: HYPERTENSION
  10. OXYCODONE HYDROCHLORIDE [Concomitant]
     Indication: ABDOMINAL PAIN
     Dosage: 40 MILLIGRAM DAILY;
     Dates: start: 20120101

REACTIONS (1)
  - Cholangitis [Recovered/Resolved]
